FAERS Safety Report 5743547-8 (Version None)
Quarter: 2008Q2

REPORT INFORMATION
  Report Type: 
  Country: None (occurrence: None)
  Receive Date: 20080519
  Receipt Date: 20080519
  Transmission Date: 20081010
  Serious: Yes (Life-Threatening, Hospitalization, Disabling, Other)
  Sender: FDA-Public Use
  Company Number: None

PATIENT
  Age: 69 Year
  Sex: Female
  Weight: 77.1115 kg

DRUGS (2)
  1. SYMLIN [Suspect]
     Indication: DIABETES MELLITUS
  2. SYMLIN [Suspect]
     Indication: WEIGHT CONTROL

REACTIONS (4)
  - BIPOLAR DISORDER [None]
  - BLOOD SODIUM DECREASED [None]
  - HYPOGLYCAEMIA [None]
  - MENTAL DISORDER [None]
